FAERS Safety Report 13344456 (Version 1)
Quarter: 2017Q1

REPORT INFORMATION
  Report Type: Report from Study
  Country: JP (occurrence: JP)
  Receive Date: 20170317
  Receipt Date: 20170317
  Transmission Date: 20170428
  Serious: Yes (Hospitalization)
  Sender: FDA-Public Use
  Company Number: JP-ACTELION-A-CH2017-150265

PATIENT
  Age: 79 Year
  Sex: Male

DRUGS (10)
  1. FEBURIC [Concomitant]
     Active Substance: FEBUXOSTAT
  2. DIART [Concomitant]
     Active Substance: AZOSEMIDE
  3. BENET [Concomitant]
     Active Substance: RISEDRONATE SODIUM
  4. OPSUMIT [Suspect]
     Active Substance: MACITENTAN
     Indication: PULMONARY ARTERIAL HYPERTENSION
     Dosage: 10 MG, QD
     Route: 048
     Dates: start: 20161112
  5. OXYGEN. [Concomitant]
     Active Substance: OXYGEN
  6. PREDONINE [Suspect]
     Active Substance: PREDNISOLONE
     Indication: SCLERODERMA
     Dosage: UNK
     Route: 048
  7. BAYASPIRIN [Concomitant]
     Active Substance: ASPIRIN
  8. CRESTOR [Concomitant]
     Active Substance: ROSUVASTATIN CALCIUM
  9. CALBLOCK [Concomitant]
     Active Substance: AZELNIDIPINE
  10. NICORANDIL [Concomitant]
     Active Substance: NICORANDIL

REACTIONS (10)
  - Blood alkaline phosphatase increased [Recovered/Resolved]
  - Alanine aminotransferase increased [Recovered/Resolved]
  - Pneumonia [Recovering/Resolving]
  - Gamma-glutamyltransferase increased [Recovered/Resolved]
  - Gastritis [Recovering/Resolving]
  - Aspartate aminotransferase increased [Recovered/Resolved]
  - Blood bilirubin increased [Recovered/Resolved]
  - Constipation [Recovering/Resolving]
  - Hepatic function abnormal [Recovered/Resolved]
  - Diabetes mellitus [Recovering/Resolving]

NARRATIVE: CASE EVENT DATE: 20170113
